FAERS Safety Report 10069982 (Version 1)
Quarter: 2014Q2

REPORT INFORMATION
  Report Type: Spontaneous
  Country: US (occurrence: US)
  Receive Date: 20140410
  Receipt Date: 20140410
  Transmission Date: 20141212
  Serious: Yes (Hospitalization)
  Sender: FDA-Public Use
  Company Number: US-JNJFOC-20140402711

PATIENT
  Age: 65 Year
  Sex: Male

DRUGS (7)
  1. XARELTO [Suspect]
     Indication: THROMBOSIS PROPHYLAXIS
     Dosage: WAS GIVEN A PRESCRIPTION FOR XARELTO 20MG ON 27-NOV-2013.
     Route: 048
     Dates: end: 2013
  2. XARELTO [Suspect]
     Indication: THROMBOSIS PROPHYLAXIS
     Dosage: LATE IN NOV 2013 AROUND 21-NOV-2013
     Route: 048
     Dates: end: 2013
  3. SYNTHROID [Concomitant]
     Route: 065
  4. VYTORIN [Concomitant]
     Route: 065
  5. DIOVAN [Concomitant]
     Route: 065
  6. CIALIS [Concomitant]
     Route: 065
  7. HYDROCODONE [Concomitant]
     Route: 065

REACTIONS (1)
  - Deep vein thrombosis [Unknown]
